FAERS Safety Report 20937582 (Version 1)
Quarter: 2022Q2

REPORT INFORMATION
  Report Type: Other
  Country: US (occurrence: None)
  Receive Date: 20220609
  Receipt Date: 20220609
  Transmission Date: 20220720
  Serious: Yes (Hospitalization, Other)
  Sender: FDA-Public Use
  Company Number: US-ROCHE-3108850

PATIENT
  Sex: Male

DRUGS (1)
  1. ACTEMRA [Suspect]
     Active Substance: TOCILIZUMAB
     Indication: Product used for unknown indication
     Dosage: INJECT 162MG SUBCUTANEOUSLY EVERY WEEK ON SUNDAYS
     Route: 058

REACTIONS (3)
  - Pain [Unknown]
  - Blindness transient [Unknown]
  - Insomnia [Unknown]
